FAERS Safety Report 7577719-7 (Version None)
Quarter: 2011Q2

REPORT INFORMATION
  Report Type: 
  Country: None (occurrence: None)
  Receive Date: 20110628
  Receipt Date: 20110620
  Transmission Date: 20111010
  Serious: Yes (Other)
  Sender: FDA-Public Use
  Company Number: CA-PFIZER INC-2011138543

PATIENT
  Age: 68 Year
  Sex: Female

DRUGS (4)
  1. DETROL LA [Suspect]
     Dosage: 2X 4MG EVERY MORNING
  2. BROMAZEPAM [Concomitant]
     Dosage: 1.5 MG, 1X/DAY IN THE MORNING
  3. DETROL LA [Suspect]
     Dosage: 4 MG, UNK
     Dates: start: 20110301
  4. PREMARIN [Concomitant]
     Dosage: 0.625 MG, UNK

REACTIONS (2)
  - FATIGUE [None]
  - POLLAKIURIA [None]
